FAERS Safety Report 8006930-6 (Version None)
Quarter: 2011Q4

REPORT INFORMATION
  Report Type: 
  Country: None (occurrence: None)
  Receive Date: 20111227
  Receipt Date: 20111215
  Transmission Date: 20120403
  Serious: Yes (Hospitalization)
  Sender: FDA-Public Use
  Company Number: JP-UCBSA-024547

PATIENT
  Age: 64 Year
  Sex: Female

DRUGS (30)
  1. CERTOLIZUMAB PEGOL [Suspect]
     Indication: RHEUMATOID ARTHRITIS
     Route: 058
     Dates: start: 20110812, end: 20111104
  2. RHEUMATREX [Suspect]
     Dosage: 4 MG- 2 MG- 2 MG
     Route: 048
     Dates: start: 20080509, end: 20101214
  3. FOLIC ACID [Concomitant]
     Indication: RHEUMATOID ARTHRITIS
     Dates: start: 20111205
  4. TROXIPIDE [Concomitant]
     Dosage: DAILY 200 MG
     Dates: start: 20090226
  5. CATAPLASMATA [Concomitant]
     Dates: start: 20111118
  6. CEFCAPENE PIVOXIL HYDROCHLORIDE HYDRATE [Concomitant]
     Dosage: TOTAL DAILY DOSE : 300 MG
     Dates: start: 20111118, end: 20111125
  7. CERTOLIZUMAB PEGOL [Suspect]
     Route: 058
     Dates: start: 20110318, end: 20110715
  8. RHEUMATREX [Suspect]
     Dosage: 4 MG-2 MG-2 MG
     Route: 048
     Dates: start: 20110107, end: 20110205
  9. RHEUMATREX [Suspect]
     Indication: RHEUMATOID ARTHRITIS
     Dosage: 4 MG-2 MG-2 MG
     Route: 048
     Dates: start: 20111203
  10. FOLIC ACID [Concomitant]
     Dates: start: 20071217, end: 20101216
  11. KETOPROFEN [Concomitant]
     Dosage: ADEQUATE DOSE
     Dates: start: 20100730
  12. PREDNISOLONE [Concomitant]
     Indication: RHEUMATOID ARTHRITIS
     Dosage: 1MG TABLET
     Dates: start: 20101120, end: 20101223
  13. OFLOXACIN [Concomitant]
     Dosage: ADEQUATE DOSE
     Dates: start: 20101228, end: 20110415
  14. CERTOLIZUMAB PEGOL [Suspect]
     Route: 058
     Dates: start: 20110121, end: 20110121
  15. PRAVASTATIN SODIUM [Concomitant]
     Dosage: 5 MG DAILY
     Dates: start: 20110701
  16. FOLIC ACID [Concomitant]
     Dates: start: 20110815, end: 20110829
  17. FOLIC ACID [Concomitant]
     Dates: start: 20110221, end: 20110725
  18. CELECOXIB [Concomitant]
     Indication: RHEUMATOID ARTHRITIS
     Dates: start: 20080508
  19. FLUOROMETHOLONE [Concomitant]
     Dosage: ADEQUATE DOSE
     Dates: start: 20110208, end: 20111006
  20. RHEUMATREX [Suspect]
     Dosage: 4 MG-2 MG-2 MG
     Route: 048
     Dates: start: 20110218, end: 20110724
  21. CERTOLIZUMAB PEGOL [Suspect]
     Route: 058
     Dates: start: 20090316
  22. RHEUMATREX [Suspect]
     Dosage: 4 MG-2 MG-2 MG
     Route: 048
     Dates: start: 20110910, end: 20111113
  23. FOLIC ACID [Concomitant]
     Dates: start: 20110110, end: 20110207
  24. KETOPROFEN [Concomitant]
     Indication: RHEUMATOID ARTHRITIS
     Dosage: ADEQUATE DOSE
     Dates: start: 20100409
  25. DICLOFENAC SODIUM [Concomitant]
     Dosage: ADEQUATE DOSE
     Dates: start: 20100618, end: 20110207
  26. CERTOLIZUMAB PEGOL [Suspect]
     Route: 058
     Dates: start: 20090928, end: 20101203
  27. RHEUMATREX [Suspect]
     Dosage: 4 MG-2 MG-2 MG
     Route: 048
     Dates: start: 20110813, end: 20110828
  28. FOLIC ACID [Concomitant]
     Dates: start: 20110912, end: 20111114
  29. AMLODIPINE BESYLATE [Concomitant]
     Dosage: DAILY DOSE 5 MG
     Dates: start: 20100812
  30. SODIUM PICOSULFATE HYDRATE [Concomitant]
     Dosage: ADEQUATE DOSE
     Dates: start: 20110212

REACTIONS (4)
  - OTITIS MEDIA CHRONIC [None]
  - SUBCUTANEOUS ABSCESS [None]
  - VIITH NERVE PARALYSIS [None]
  - RHEUMATOID ARTHRITIS [None]
